FAERS Safety Report 11805757 (Version 1)
Quarter: 2015Q4

REPORT INFORMATION
  Report Type: Spontaneous
  Country: US (occurrence: None)
  Receive Date: 20151204
  Receipt Date: 20151204
  Transmission Date: 20160305
  Serious: Yes (Other)
  Sender: FDA-Public Use
  Company Number: None

PATIENT
  Age: 29 Year
  Sex: Female
  Weight: 122.47 kg

DRUGS (1)
  1. CARBAMIDE PEROXIDE 6.5% EAR WX REMOVAL AID DOLLAR GENERAL BRAND [Suspect]
     Active Substance: CARBAMIDE PEROXIDE
     Indication: EXCESSIVE CERUMEN PRODUCTION
     Dosage: TWICE DAILY 12/22015?5-10 DROPS  INTO THE EAR
     Dates: start: 20151202

REACTIONS (1)
  - Instillation site burn [None]

NARRATIVE: CASE EVENT DATE: 20151202
